FAERS Safety Report 8816761 (Version 5)
Quarter: 2013Q1

REPORT INFORMATION
  Report Type: Spontaneous
  Country: US (occurrence: None)
  Receive Date: 20121001
  Receipt Date: 20130131
  Transmission Date: 20140127
  Serious: Yes (Death, Hospitalization)
  Sender: FDA-Public Use
  Company Number: 2012-0913

PATIENT
  Age: 76 Year
  Sex: Female
  Weight: 65.77 kg

DRUGS (1)
  1. KYPROLIS (CARFILZOMIB) (20 MILLIGRAM(S) /SQ. METER, INJECTION FOR INFUSION) (CARFILZOMIB) [Suspect]
     Indication: PLASMA CELL MYELOMA
     Dosage: (2 IN 1 WK) INJECTION FOR INFUSION 20MILLIGRAMS /SQ. METER??
     Route: 042
     Dates: start: 20120801, end: 20121003

REACTIONS (22)
  - Pleural effusion [None]
  - Hypercalcaemia [None]
  - Fatigue [None]
  - Eyelid ptosis [None]
  - Atelectasis [None]
  - Platelet count decreased [None]
  - Asthenia [None]
  - Plasma cell myeloma [None]
  - Musculoskeletal chest pain [None]
  - Palpitations [None]
  - Pulmonary haemorrhage [None]
  - Pyrexia [None]
  - Nausea [None]
  - Dialysis [None]
  - Renal failure acute [None]
  - Haemoglobin decreased [None]
  - White blood cell count decreased [None]
  - Red blood cell count decreased [None]
  - Clostridium difficile infection [None]
  - Pneumonia [None]
  - Pleural effusion [None]
  - Cough [None]
